FAERS Safety Report 20351306 (Version 1)
Quarter: 2022Q1

REPORT INFORMATION
  Report Type: Spontaneous
  Country: US (occurrence: None)
  Receive Date: 20220118
  Receipt Date: 20220118
  Transmission Date: 20220423
  Serious: Yes (Life-Threatening, Hospitalization)
  Sender: FDA-Public Use
  Company Number: None

PATIENT
  Age: 65 Year
  Sex: Male

DRUGS (3)
  1. PAXLOVID [Suspect]
     Active Substance: NIRMATRELVIR\RITONAVIR
     Indication: COVID-19
     Dosage: FREQUENCY : TWICE A DAY;?
     Dates: start: 20220105, end: 20220110
  2. TACROLIMUS [Concomitant]
     Active Substance: TACROLIMUS
  3. RIVAROXABAN [Concomitant]
     Active Substance: RIVAROXABAN

REACTIONS (12)
  - Fatigue [None]
  - Syncope [None]
  - Acute kidney injury [None]
  - Encephalopathy [None]
  - Toxicity to various agents [None]
  - Metabolic acidosis [None]
  - Neurotoxicity [None]
  - Tremor [None]
  - Pancreatitis [None]
  - Electrocardiogram QT prolonged [None]
  - Ejection fraction decreased [None]
  - Chromaturia [None]

NARRATIVE: CASE EVENT DATE: 20220111
